FAERS Safety Report 21205171 (Version 2)
Quarter: 2022Q3

REPORT INFORMATION
  Report Type: Spontaneous
  Country: US (occurrence: None)
  Receive Date: 20220812
  Receipt Date: 20220818
  Transmission Date: 20221027
  Serious: Yes (Hospitalization)
  Sender: FDA-Public Use
  Company Number: US-ROCHE-3158541

PATIENT
  Age: 64 Year
  Sex: Female
  Weight: 65.830 kg

DRUGS (1)
  1. BONIVA [Suspect]
     Active Substance: IBANDRONATE SODIUM
     Indication: Osteopenia
     Route: 048
     Dates: start: 202011

REACTIONS (4)
  - Off label use [Unknown]
  - Gastritis [Not Recovered/Not Resolved]
  - Lower limb fracture [Recovering/Resolving]
  - Hiatus hernia [Not Recovered/Not Resolved]

NARRATIVE: CASE EVENT DATE: 20201101
